FAERS Safety Report 9701141 (Version 1)
Quarter: 2013Q4

REPORT INFORMATION
  Report Type: Spontaneous
  Country: US (occurrence: US)
  Receive Date: 20131121
  Receipt Date: 20131121
  Transmission Date: 20140711
  Serious: No
  Sender: FDA-Public Use
  Company Number: US-GILEAD-2008-0015807

PATIENT
  Sex: Female
  Weight: 107.5 kg

DRUGS (14)
  1. LETAIRIS [Suspect]
     Indication: PULMONARY ARTERIAL HYPERTENSION
     Route: 048
     Dates: start: 20080229
  2. ZOCOR [Concomitant]
     Route: 048
  3. XANAX [Concomitant]
     Route: 048
  4. AMBIEN [Concomitant]
     Route: 048
  5. AVANDIA [Concomitant]
     Route: 048
  6. LASIX [Concomitant]
     Route: 048
  7. COUMADIN [Concomitant]
     Route: 048
  8. NORVASC [Concomitant]
     Route: 048
  9. STARLIX [Concomitant]
     Route: 048
  10. DESYREL [Concomitant]
     Route: 048
  11. HYDRALAZINE [Concomitant]
     Route: 048
  12. LEXAPRO [Concomitant]
     Route: 048
  13. INVEGA ER [Concomitant]
     Route: 048
  14. ZIAC [Concomitant]
     Route: 048

REACTIONS (1)
  - Nasal congestion [Unknown]
